FAERS Safety Report 24839047 (Version 1)
Quarter: 2025Q1

REPORT INFORMATION
  Report Type: Spontaneous
  Country: US (occurrence: US)
  Receive Date: 20250114
  Receipt Date: 20250114
  Transmission Date: 20250409
  Serious: Yes (Hospitalization)
  Sender: AMGEN
  Company Number: US-AMGEN-USASP2025001821

PATIENT
  Age: 17 Year
  Sex: Female

DRUGS (4)
  1. PREDNISONE [Suspect]
     Active Substance: PREDNISONE
     Indication: Thyroiditis subacute
     Dosage: 30 MILLIGRAM, QD
     Route: 065
  2. PROPRANOLOL [Concomitant]
     Active Substance: PROPRANOLOL HYDROCHLORIDE
     Route: 065
  3. PROPRANOLOL [Concomitant]
     Active Substance: PROPRANOLOL HYDROCHLORIDE
     Dosage: 20 MILLIGRAM, BID
     Route: 065
  4. DEXAMETHASONE [Concomitant]
     Active Substance: DEXAMETHASONE
     Route: 065

REACTIONS (7)
  - Septic embolus [Unknown]
  - Oesophageal fistula [Unknown]
  - Systemic inflammatory response syndrome [Unknown]
  - Sepsis [Unknown]
  - Herpes simplex oesophagitis [Unknown]
  - Oesophageal perforation [Unknown]
  - Infectious thyroiditis [Unknown]
